FAERS Safety Report 8785311 (Version 1)
Quarter: 2012Q4

REPORT INFORMATION
  Report Type: Spontaneous
  Country: JP (occurrence: None)
  Receive Date: 20120905
  Receipt Date: 20120905
  Transmission Date: 20130627
  Serious: Yes (Other)
  Sender: FDA-Public Use
  Company Number: 2012033243

PATIENT

DRUGS (4)
  1. ALBUMIN (HUMAN) [Suspect]
     Route: 042
  2. ALBUMIN (HUMAN) [Suspect]
     Route: 042
  3. TERLIPRESSIN [Suspect]
     Dosage: 1 mg per 8hrs on 1 day (total of 2 doses, treatment discontinued on 1st day of therapy
     Route: 042
  4. TERLIPRESSIN [Suspect]

REACTIONS (4)
  - Pulmonary oedema [None]
  - Thrombocytopenia [None]
  - Diarrhoea [None]
  - Hypokalaemia [None]
